FAERS Safety Report 9250869 (Version 1)
Quarter: 2013Q2

REPORT INFORMATION
  Report Type: Report from Study
  Country: LB (occurrence: LB)
  Receive Date: 20130424
  Receipt Date: 20130424
  Transmission Date: 20140414
  Serious: Yes (Hospitalization)
  Sender: FDA-Public Use
  Company Number: PHHO2013LB004730

PATIENT
  Age: 32 Year
  Sex: Male
  Weight: 95 kg

DRUGS (4)
  1. ICL670A [Suspect]
     Indication: THALASSAEMIA
     Dosage: 1000 MG, QD
     Route: 048
     Dates: start: 20130328, end: 20130329
  2. ICL670A [Suspect]
     Dosage: 1000 MG, QD
     Route: 048
     Dates: start: 20130411
  3. ASPIRIN [Suspect]
     Indication: PLATELET COUNT INCREASED
     Dosage: 100 MG, QD
  4. FOLIC ACID [Concomitant]
     Indication: THALASSAEMIA BETA
     Dosage: 5 MG, QD

REACTIONS (1)
  - Pancreatitis [Recovered/Resolved]
